FAERS Safety Report 8516261-3 (Version None)
Quarter: 2012Q3

REPORT INFORMATION
  Report Type: 
  Country: None (occurrence: None)
  Receive Date: 20120717
  Receipt Date: 20120702
  Transmission Date: 20120928
  Serious: Yes (Other)
  Sender: FDA-Public Use
  Company Number: CHPA2012US014867

PATIENT
  Age: 66 Year
  Sex: Male

DRUGS (2)
  1. AFRIN                              /00070002/ [Concomitant]
     Indication: NASAL CONGESTION
     Dosage: UNK, UNK
     Route: 045
  2. PHENYLEPHRINE HCL [Suspect]
     Indication: NASAL CONGESTION
     Dosage: UNK, QD
     Route: 045

REACTIONS (3)
  - EXPIRED DRUG ADMINISTERED [None]
  - INCORRECT DRUG ADMINISTRATION DURATION [None]
  - DRUG DEPENDENCE [None]
